FAERS Safety Report 25649724 (Version 1)
Quarter: 2025Q3

REPORT INFORMATION
  Report Type: Spontaneous
  Country: US (occurrence: US)
  Receive Date: 20250806
  Receipt Date: 20250806
  Transmission Date: 20251021
  Serious: No
  Sender: RANBAXY
  Company Number: US-MIMS-SUN-2024-USA-50785

PATIENT
  Sex: Female

DRUGS (1)
  1. RISEDRONATE SODIUM [Suspect]
     Active Substance: RISEDRONATE SODIUM
     Indication: Osteoporosis
     Dosage: 35 MILLIGRAM, WEEKLY
     Route: 065
     Dates: start: 20250119, end: 20250502

REACTIONS (3)
  - Fatigue [Unknown]
  - Myalgia [Unknown]
  - Lethargy [Unknown]
